FAERS Safety Report 12955391 (Version 1)
Quarter: 2016Q4

REPORT INFORMATION
  Report Type: Spontaneous
  Country: US (occurrence: US)
  Receive Date: 20161118
  Receipt Date: 20161118
  Transmission Date: 20170207
  Serious: No
  Sender: FDA-Public Use
  Company Number: US-PERRIGO-16US017598

PATIENT
  Age: 62 Year
  Sex: Male
  Weight: 81.63 kg

DRUGS (4)
  1. SOMA [Concomitant]
     Active Substance: CARISOPRODOL
     Indication: ARTHRALGIA
     Dosage: UNK
     Route: 065
  2. OXYCODONE [Concomitant]
     Active Substance: OXYCODONE
     Indication: ARTHRALGIA
     Dosage: UNK
     Route: 065
  3. NORCO [Concomitant]
     Active Substance: ACETAMINOPHEN\HYDROCODONE BITARTRATE
     Indication: ARTHRALGIA
     Dosage: UNK
     Route: 065
  4. POLYETHYLENE GLYCOL 3350. [Suspect]
     Active Substance: POLYETHYLENE GLYCOL 3350
     Indication: CONSTIPATION
     Dosage: 8.5 G, QD
     Route: 048
     Dates: start: 201601, end: 20160518

REACTIONS (5)
  - Urinary incontinence [Not Recovered/Not Resolved]
  - Decreased appetite [Recovered/Resolved]
  - Incorrect drug administration duration [Recovered/Resolved]
  - Underdose [Recovered/Resolved]
  - Defaecation urgency [Recovered/Resolved]

NARRATIVE: CASE EVENT DATE: 201601
